FAERS Safety Report 23136795 (Version 1)
Quarter: 2023Q4

REPORT INFORMATION
  Report Type: Spontaneous
  Country: GB (occurrence: GB)
  Receive Date: 20231102
  Receipt Date: 20231102
  Transmission Date: 20240110
  Serious: Yes (Other)
  Sender: FDA-Public Use
  Company Number: None

PATIENT
  Age: 72 Year
  Sex: Female
  Weight: 60 kg

DRUGS (2)
  1. NAPROXEN [Suspect]
     Active Substance: NAPROXEN
     Indication: Adverse drug reaction
     Dosage: 500 MILLIGRAM DAILY; 250 MG TWICE PER DAY; ;
     Route: 065
  2. NAPROXEN [Suspect]
     Active Substance: NAPROXEN
     Indication: Arthritis
     Dosage: 500 MILLIGRAM DAILY; 250 MG TWICE A DAY; ;
     Route: 065

REACTIONS (1)
  - Bladder disorder [Not Recovered/Not Resolved]
